FAERS Safety Report 8249294-5 (Version None)
Quarter: 2012Q1

REPORT INFORMATION
  Report Type: 
  Country: None (occurrence: None)
  Receive Date: 20120315
  Receipt Date: 20110811
  Transmission Date: 20120608
  Serious: Yes (Hospitalization)
  Sender: FDA-Public Use
  Company Number: 121127

PATIENT
  Age: 48 Year
  Sex: Female
  Weight: 61 kg

DRUGS (1)
  1. CLADRIBINE [Suspect]
     Indication: HAIRY CELL LEUKAEMIA
     Dosage: 6.14MG IV QD X 7 DAYS
     Route: 042
     Dates: start: 20110801, end: 20110807

REACTIONS (3)
  - HEADACHE [None]
  - NEUROTOXICITY [None]
  - SINUSITIS [None]
